FAERS Safety Report 21944450 (Version 1)
Quarter: 2023Q1

REPORT INFORMATION
  Report Type: Spontaneous
  Country: FR (occurrence: None)
  Receive Date: 20230202
  Receipt Date: 20230202
  Transmission Date: 20230418
  Serious: Yes (Other)
  Sender: FDA-Public Use
  Company Number: 2023A026079

PATIENT
  Sex: Female

DRUGS (2)
  1. LYNPARZA [Suspect]
     Active Substance: OLAPARIB
     Dosage: 1 TABLET OF LYNPARZA 100 IN THE MORNING, ONE TABLET IN THE EVENING
     Route: 048
  2. EFFERALGAN [Concomitant]
     Active Substance: ACETAMINOPHEN

REACTIONS (4)
  - Accidental overdose [Unknown]
  - Pain [Unknown]
  - Fatigue [Unknown]
  - Off label use [Unknown]

NARRATIVE: CASE EVENT DATE: 20230126
